FAERS Safety Report 16160409 (Version 1)
Quarter: 2019Q2

REPORT INFORMATION
  Report Type: Spontaneous
  Country: CN (occurrence: CN)
  Receive Date: 20190404
  Receipt Date: 20190404
  Transmission Date: 20190711
  Serious: Yes (Other)
  Sender: FDA-Public Use
  Company Number: CN-BAXTER-2019BAX006623

PATIENT
  Age: 47 Year
  Sex: Female

DRUGS (6)
  1. ENDOXAN [Suspect]
     Active Substance: CYCLOPHOSPHAMIDE
     Indication: METASTASES TO BONE
     Dosage: CYCLOPHOSPHAMIDE FOR INJECTION 0.8 G + 0.9% NS 40 ML IVGTT
     Route: 041
     Dates: start: 20181220, end: 20181220
  2. DOXORUBICIN HYDROCHLORIDE. [Suspect]
     Active Substance: DOXORUBICIN HYDROCHLORIDE
     Indication: BREAST CANCER FEMALE
  3. DOXORUBICIN HYDROCHLORIDE. [Suspect]
     Active Substance: DOXORUBICIN HYDROCHLORIDE
     Indication: METASTASES TO BONE
     Dosage: DOXORUBICIN HYDROCHLORIDE FOR INJECTION 80 MG + 0.9% NS 40 ML IVGTT
     Route: 041
     Dates: start: 20181220, end: 20181220
  4. ENDOXAN [Suspect]
     Active Substance: CYCLOPHOSPHAMIDE
     Indication: BREAST CANCER FEMALE
  5. 0.9% SODIUM CHLORIDE INJECTION [Suspect]
     Active Substance: SODIUM CHLORIDE
     Dosage: DOXORUBICIN HYDROCHLORIDE FOR INJECTION 80 MG + 0.9% NS 40 ML IVGTT
     Route: 041
     Dates: start: 20181220, end: 20181220
  6. 0.9% SODIUM CHLORIDE INJECTION [Suspect]
     Active Substance: SODIUM CHLORIDE
     Indication: MEDICATION DILUTION
     Dosage: CYCLOPHOSPHAMIDE FOR INJECTION 0.8 G + 0.9% NS 40 ML IVGTT
     Route: 041
     Dates: start: 20181220, end: 20181220

REACTIONS (1)
  - White blood cell count decreased [Recovered/Resolved]

NARRATIVE: CASE EVENT DATE: 20181231
